FAERS Safety Report 8118361-9 (Version None)
Quarter: 2011Q4

REPORT INFORMATION
  Report Type: 
  Country: None (occurrence: None)
  Receive Date: 20111227
  Receipt Date: 20111012
  Transmission Date: 20120403
  Serious: No
  Sender: FDA-Public Use
  Company Number: PHEH2011US06745

PATIENT
  Age: 49 Year
  Sex: Female

DRUGS (6)
  1. IRON (IRON) [Concomitant]
  2. VITAMIN D [Concomitant]
  3. ASCORBIC ACID [Concomitant]
  4. HYDROCHLOROTHIAZIDE [Concomitant]
  5. GILENYA [Suspect]
     Dosage: 0.5 MG, QD, ORAL
     Route: 048
     Dates: start: 20110701
  6. AMLODIPINE [Concomitant]

REACTIONS (2)
  - FEELING JITTERY [None]
  - DIARRHOEA [None]
